FAERS Safety Report 9398047 (Version 1)
Quarter: 2013Q3

REPORT INFORMATION
  Report Type: Spontaneous
  Country: GB (occurrence: GB)
  Receive Date: 20130712
  Receipt Date: 20130712
  Transmission Date: 20140515
  Serious: Yes (Hospitalization, Other)
  Sender: FDA-Public Use
  Company Number: GB-PFIZER INC-2013199850

PATIENT
  Age: 74 Year
  Sex: 0

DRUGS (5)
  1. FLUCONAZOLE [Suspect]
     Indication: ORAL CANDIDIASIS
     Dosage: 50 MG, 1X/DAY
     Route: 048
     Dates: start: 20110429, end: 20110503
  2. AMOXICILLIN [Suspect]
     Indication: COUGH
     Dosage: 500 MG, 3X/DAY
     Route: 048
     Dates: start: 20110209, end: 20110216
  3. AMOXICILLIN [Suspect]
     Dosage: 500 MG, 3X/DAY
     Route: 048
     Dates: start: 20110328, end: 20110404
  4. CEFACLOR [Suspect]
     Indication: DIVERTICULITIS
     Dosage: 375 MG, 2X/DAY
     Route: 048
     Dates: start: 20110408, end: 20110414
  5. ERTAPENEM [Suspect]
     Indication: GRAM STAIN NEGATIVE
     Dosage: 1 G, 1X/DAY
     Route: 041
     Dates: start: 20110424, end: 20110504

REACTIONS (2)
  - Clostridium difficile infection [Recovered/Resolved]
  - Diarrhoea [Unknown]
